FAERS Safety Report 5006528-8 (Version None)
Quarter: 2006Q2

REPORT INFORMATION
  Report Type: 
  Country: None (occurrence: None)
  Receive Date: 20060516
  Receipt Date: 20060508
  Transmission Date: 20061013
  Serious: Yes (Other)
  Sender: FDA-Public Use
  Company Number: 2006061990

PATIENT
  Age: 68 Year
  Sex: Male

DRUGS (4)
  1. LIPITOR [Suspect]
     Indication: BLOOD CHOLESTEROL INCREASED
     Dosage: 10 MG (10 MG, 1 IN 1 D), ORAL
     Route: 048
     Dates: end: 20050101
  2. ZYRTEC [Concomitant]
  3. HYDROCHLOROTHIAZIDE/TRIAMTERENE (HYDROCHLOROTHIAZIDE, TRIAMTERENE) [Concomitant]
  4. ACCUPRIL [Concomitant]

REACTIONS (6)
  - ABASIA [None]
  - ASTHENIA [None]
  - BLOOD TEST ABNORMAL [None]
  - INFLUENZA [None]
  - MUSCLE ATROPHY [None]
  - MYALGIA [None]
